FAERS Safety Report 5931004-5 (Version None)
Quarter: 2008Q4

REPORT INFORMATION
  Report Type: 
  Country: None (occurrence: None)
  Receive Date: 20081009
  Receipt Date: 20080716
  Transmission Date: 20090506
  Serious: Yes (Hospitalization)
  Sender: FDA-Public Use
  Company Number: LUP-0336

PATIENT
  Age: 57 Year
  Sex: Male
  Weight: 89.3586 kg

DRUGS (6)
  1. LISINOPRIL [Suspect]
     Indication: HYPERTENSION
     Dosage: 20 MG TID PO
     Route: 048
     Dates: start: 20080425, end: 20080512
  2. CVS SPECTRAVITE [Concomitant]
  3. SPIRONOLACTONE [Concomitant]
  4. ISOSORBIDE [Concomitant]
  5. HYDRALAZINE HCL [Concomitant]
  6. FUROSEMIDE [Concomitant]

REACTIONS (2)
  - HYPERSENSITIVITY [None]
  - URINARY TRACT INFECTION [None]
